FAERS Safety Report 25465820 (Version 1)
Quarter: 2025Q2

REPORT INFORMATION
  Report Type: Spontaneous
  Country: US (occurrence: US)
  Receive Date: 20250623
  Receipt Date: 20250623
  Transmission Date: 20250716
  Serious: No
  Sender: BIOGEN
  Company Number: US-BIOGEN-2025BI01308162

PATIENT
  Sex: Female

DRUGS (5)
  1. VUMERITY [Suspect]
     Active Substance: DIROXIMEL FUMARATE
     Indication: Multiple sclerosis
     Route: 050
     Dates: start: 20240620
  2. TOPAMAX [Concomitant]
     Active Substance: TOPIRAMATE
     Route: 050
  3. LAMICTAL [Concomitant]
     Active Substance: LAMOTRIGINE
     Route: 050
  4. SPIRONOLACTONE [Concomitant]
     Active Substance: SPIRONOLACTONE
     Route: 050
  5. ADDERALL [Concomitant]
     Active Substance: AMPHETAMINE ASPARTATE\AMPHETAMINE SULFATE\DEXTROAMPHETAMINE SACCHARATE\DEXTROAMPHETAMINE SULFATE
     Route: 050

REACTIONS (2)
  - Abdominal discomfort [Unknown]
  - Abdominal distension [Unknown]
